FAERS Safety Report 16853819 (Version 11)
Quarter: 2023Q2

REPORT INFORMATION
  Report Type: Report from Study
  Country: PT (occurrence: PT)
  Receive Date: 20190926
  Receipt Date: 20230517
  Transmission Date: 20230721
  Serious: Yes (Hospitalization, Other)
  Sender: FDA-Public Use
  Company Number: PT-CELLTRION INC.-2019PT025061

PATIENT

DRUGS (20)
  1. TRASTUZUMAB [Suspect]
     Active Substance: TRASTUZUMAB
     Indication: HER2 positive breast cancer
     Dosage: 342 MG EVERY 3 WEEKS
     Route: 042
     Dates: start: 20170606, end: 20180406
  2. TRASTUZUMAB [Suspect]
     Active Substance: TRASTUZUMAB
     Dosage: 600 MG, EVERY 3 WEEKS
     Route: 042
     Dates: start: 20200615
  3. DOCETAXEL [Suspect]
     Active Substance: DOCETAXEL
     Indication: HER2 positive breast cancer
     Dosage: 91.5 MG EVERY 3 WEEKS
     Route: 042
     Dates: start: 20170718, end: 20171102
  4. DOCETAXEL [Suspect]
     Active Substance: DOCETAXEL
     Dosage: 122 MG EVERY 3 WEEKS
     Route: 042
     Dates: start: 20170606, end: 20170704
  5. PERTUZUMAB [Suspect]
     Active Substance: PERTUZUMAB
     Indication: HER2 positive breast cancer
     Dosage: 420 MG, EVERY 3 WEEKS
     Route: 042
     Dates: start: 20170606
  6. VINORELBINE [Suspect]
     Active Substance: VINORELBINE TARTRATE
     Indication: HER2 positive breast cancer
     Dosage: 50 MG
     Route: 048
     Dates: start: 20200615
  7. VINORELBINE [Suspect]
     Active Substance: VINORELBINE TARTRATE
     Dosage: 30 MG/M2 ONCE A WEEK, TWO WEEKS IN A ROW WITH 2-WEEK BREAK
     Route: 042
     Dates: start: 20200615, end: 20210301
  8. VINORELBINE [Suspect]
     Active Substance: VINORELBINE TARTRATE
     Dosage: 100 MG IN A ROW WITH 2-WEEK BREAK
     Route: 048
     Dates: start: 20210426
  9. ADO-TRASTUZUMAB EMTANSINE [Suspect]
     Active Substance: ADO-TRASTUZUMAB EMTANSINE
     Indication: HER2 positive breast cancer
     Dosage: 3.6 MG/KG EVERY 3 WEEKS
     Route: 042
     Dates: start: 20190213, end: 20190327
  10. ADO-TRASTUZUMAB EMTANSINE [Suspect]
     Active Substance: ADO-TRASTUZUMAB EMTANSINE
     Dosage: 180MG EVERY 3 WEEKS
     Route: 042
     Dates: start: 20190930, end: 20191001
  11. ADO-TRASTUZUMAB EMTANSINE [Suspect]
     Active Substance: ADO-TRASTUZUMAB EMTANSINE
     Dosage: 3.6 MG/KG EVERY 3 WEEKS
     Route: 042
     Dates: start: 20190628, end: 20190717
  12. ADO-TRASTUZUMAB EMTANSINE [Suspect]
     Active Substance: ADO-TRASTUZUMAB EMTANSINE
     Dosage: 3.6 MG/KG EVERY 3 WEEKS
     Route: 042
     Dates: start: 20190517, end: 20190606
  13. ADO-TRASTUZUMAB EMTANSINE [Suspect]
     Active Substance: ADO-TRASTUZUMAB EMTANSINE
     Dosage: 3.6 MG/KG EVERY 3 WEEKS
     Route: 042
     Dates: start: 20180806, end: 20190128
  14. ADO-TRASTUZUMAB EMTANSINE [Suspect]
     Active Substance: ADO-TRASTUZUMAB EMTANSINE
     Dosage: 3.6 MG/KG EVERY 3 WEEKS
     Route: 042
     Dates: start: 20190726, end: 20190814
  15. ADO-TRASTUZUMAB EMTANSINE [Suspect]
     Active Substance: ADO-TRASTUZUMAB EMTANSINE
     Dosage: 144MG EVERY 3 WEEKS
     Route: 042
     Dates: start: 20191106, end: 20200522
  16. ADO-TRASTUZUMAB EMTANSINE [Suspect]
     Active Substance: ADO-TRASTUZUMAB EMTANSINE
     Dosage: 3.6 MG/KG3.6 MG/KG, EVERY 3 WEEKS
     Route: 042
     Dates: start: 20190517, end: 20190606
  17. ADO-TRASTUZUMAB EMTANSINE [Suspect]
     Active Substance: ADO-TRASTUZUMAB EMTANSINE
     Dosage: 3.6 MG/KG, EVERY 3 WEEKS
     Route: 042
     Dates: start: 20190726, end: 20190814
  18. FAM-TRASTUZUMAB DERUXTECAN-NXKI [Suspect]
     Active Substance: FAM-TRASTUZUMAB DERUXTECAN-NXKI
     Indication: HER2 positive breast cancer
     Dosage: 340 MG, EVERY 3 WEEKS
     Route: 042
     Dates: start: 20220323
  19. BISOPROLOL [Concomitant]
     Active Substance: BISOPROLOL
     Dosage: 1 MG
     Route: 048
  20. ACETAMINOPHEN [Concomitant]
     Active Substance: ACETAMINOPHEN
     Indication: Pyrexia
     Dosage: 1000 MG
     Route: 048
     Dates: start: 20170704

REACTIONS (8)
  - Febrile neutropenia [Recovered/Resolved]
  - Neutropenia [Recovered/Resolved]
  - Neutropenia [Recovered/Resolved]
  - Neutropenia [Recovered/Resolved]
  - Neutropenia [Not Recovered/Not Resolved]
  - Neutrophilia [Recovered/Resolved]
  - Intentional product use issue [Unknown]
  - Overdose [Unknown]

NARRATIVE: CASE EVENT DATE: 20170704
